FAERS Safety Report 10697985 (Version 5)
Quarter: 2015Q2

REPORT INFORMATION
  Report Type: Spontaneous
  Country: US (occurrence: US)
  Receive Date: 20150108
  Receipt Date: 20150618
  Transmission Date: 20150821
  Serious: No
  Sender: FDA-Public Use
  Company Number: US-PFIZER INC-2015006776

PATIENT
  Age: 62 Year
  Sex: Female

DRUGS (9)
  1. DILANTIN [Suspect]
     Active Substance: PHENYTOIN
     Indication: PAIN
     Dosage: UNK
     Dates: start: 1995
  2. DILANTIN [Suspect]
     Active Substance: PHENYTOIN
     Dosage: 20 MG, UNK
     Dates: start: 1998
  3. PERCOCET [Concomitant]
     Active Substance: ACETAMINOPHEN\OXYCODONE HYDROCHLORIDE
     Dosage: UNK
     Dates: start: 2008
  4. NEURONTIN [Suspect]
     Active Substance: GABAPENTIN
     Indication: PAIN
     Dosage: UNK
     Dates: start: 1995
  5. NEURONTIN [Suspect]
     Active Substance: GABAPENTIN
     Dosage: 10 MG, UNK
     Dates: start: 1996
  6. PERCOCET [Concomitant]
     Active Substance: ACETAMINOPHEN\OXYCODONE HYDROCHLORIDE
     Dosage: 5/325
     Dates: start: 1994
  7. VIOXX [Suspect]
     Active Substance: ROFECOXIB
     Dosage: 25 MG, UNK
  8. VIOXX [Suspect]
     Active Substance: ROFECOXIB
     Dosage: 50 MG, UNK
  9. VIOXX [Suspect]
     Active Substance: ROFECOXIB
     Indication: PAIN
     Dosage: 20 MG, UNK

REACTIONS (7)
  - Feeling abnormal [Unknown]
  - Drug hypersensitivity [Not Recovered/Not Resolved]
  - Dyspnoea [Not Recovered/Not Resolved]
  - Pain in extremity [Not Recovered/Not Resolved]
  - Drug ineffective for unapproved indication [Unknown]
  - Chest discomfort [Not Recovered/Not Resolved]
  - Pain [Unknown]
